FAERS Safety Report 7182985-6 (Version None)
Quarter: 2010Q4

REPORT INFORMATION
  Report Type: 
  Country: None (occurrence: None)
  Receive Date: 20101210
  Receipt Date: 20101126
  Transmission Date: 20110411
  Serious: No
  Sender: FDA-Public Use
  Company Number: 2010-01009

PATIENT
  Sex: Male

DRUGS (2)
  1. ZICAM COLD REMEDY NASAL GEL [Suspect]
     Indication: NASAL CONGESTION
     Dosage: AS DIRECTED, OVER 5 YEAR
     Dates: start: 20010101, end: 20060101
  2. ZICAM COLD REMEDY NASAL GEL [Suspect]
     Indication: NASOPHARYNGITIS
     Dosage: AS DIRECTED, OVER 5 YEAR
     Dates: start: 20010101, end: 20060101

REACTIONS (3)
  - AGEUSIA [None]
  - ANOSMIA [None]
  - NASAL SEPTUM DEVIATION [None]
